FAERS Safety Report 4530414-0 (Version None)
Quarter: 2004Q4

REPORT INFORMATION
  Report Type: 
  Country: None (occurrence: None)
  Receive Date: 20041215
  Receipt Date: 20041122
  Transmission Date: 20050328
  Serious: Yes (Congenital Anomaly)
  Sender: FDA-Public Use
  Company Number: 2004GB03048

PATIENT
  Age: 0 Day
  Sex: Female
  Weight: 3.32 kg

DRUGS (3)
  1. ZESTRIL [Suspect]
     Indication: HYPERTENSION
     Dosage: 10 MG DAILY TPL
     Route: 064
     Dates: end: 20040315
  2. METFORMIN HCL [Concomitant]
  3. ROSIGLITAZONE MALEATE [Concomitant]

REACTIONS (4)
  - CONGENITAL ANOMALY [None]
  - MATERNAL DRUGS AFFECTING FOETUS [None]
  - PREMATURE BABY [None]
  - TALIPES [None]
